FAERS Safety Report 8136489-4 (Version None)
Quarter: 2012Q1

REPORT INFORMATION
  Report Type: 
  Country: None (occurrence: None)
  Receive Date: 20120214
  Receipt Date: 20120209
  Transmission Date: 20120608
  Serious: Yes (Disabling)
  Sender: FDA-Public Use
  Company Number: CA-ABBOTT-11P-028-0886398-00

PATIENT
  Sex: Female

DRUGS (1)
  1. HUMIRA [Suspect]
     Indication: ANKYLOSING SPONDYLITIS
     Route: 058
     Dates: start: 20111021

REACTIONS (7)
  - SWOLLEN TONGUE [None]
  - BACK PAIN [None]
  - ARTHRALGIA [None]
  - NERVE COMPRESSION [None]
  - TONGUE DISORDER [None]
  - MENISCUS LESION [None]
  - GAIT DISTURBANCE [None]
